FAERS Safety Report 6098258-9 (Version None)
Quarter: 2009Q1

REPORT INFORMATION
  Report Type: 
  Country: None (occurrence: None)
  Receive Date: 20090227
  Receipt Date: 20090220
  Transmission Date: 20090719
  Serious: Yes (Hospitalization)
  Sender: FDA-Public Use
  Company Number: CG-MERCK-0902USA03725

PATIENT
  Age: 40 Year
  Sex: Female

DRUGS (1)
  1. STROMECTOL [Suspect]
     Route: 048
     Dates: start: 20081113, end: 20081113

REACTIONS (7)
  - AGITATION [None]
  - CONJUNCTIVAL HAEMORRHAGE [None]
  - DIARRHOEA [None]
  - HAEMATOMA [None]
  - HALLUCINATION [None]
  - HEADACHE [None]
  - PYREXIA [None]
